FAERS Safety Report 5475838-2 (Version None)
Quarter: 2007Q4

REPORT INFORMATION
  Report Type: 
  Country: None (occurrence: None)
  Receive Date: 20071003
  Receipt Date: 20070928
  Transmission Date: 20080405
  Serious: Yes (Hospitalization)
  Sender: FDA-Public Use
  Company Number: B0489516A

PATIENT
  Age: 59 Year
  Sex: Female

DRUGS (3)
  1. AUGMENTIN '125' [Suspect]
     Indication: ACUTE SINUSITIS
     Dosage: 1G TWICE PER DAY
     Route: 048
     Dates: start: 20070803, end: 20070804
  2. AMOXICILLIN + CLAVULANATE POTASSIUM [Suspect]
     Indication: ACUTE SINUSITIS
     Dosage: 1G TWICE PER DAY
     Route: 048
     Dates: start: 20070804, end: 20070806
  3. SINUPRET [Suspect]
     Indication: ACUTE SINUSITIS
     Route: 048
     Dates: start: 20070801, end: 20070806

REACTIONS (2)
  - PYREXIA [None]
  - RENAL FAILURE ACUTE [None]
